FAERS Safety Report 12174586 (Version 2)
Quarter: 2016Q1

REPORT INFORMATION
  Report Type: Spontaneous
  Country: US (occurrence: US)
  Receive Date: 20160312
  Receipt Date: 20160315
  Transmission Date: 20160526
  Serious: No
  Sender: FDA-Public Use
  Company Number: PHEH2016US005612

PATIENT
  Sex: Male

DRUGS (1)
  1. MEKINIST [Suspect]
     Active Substance: TRAMETINIB DIMETHYL SULFOXIDE
     Indication: LIVER DISORDER
     Dosage: 2 MG, QD
     Route: 048
     Dates: start: 20151118, end: 20160303

REACTIONS (2)
  - Rash [Unknown]
  - Off label use [Unknown]
